FAERS Safety Report 22740488 (Version 2)
Quarter: 2023Q4

REPORT INFORMATION
  Report Type: Spontaneous
  Country: FR (occurrence: FR)
  Receive Date: 20230724
  Receipt Date: 20231006
  Transmission Date: 20240110
  Serious: Yes (Hospitalization, Other)
  Sender: FDA-Public Use
  Company Number: FR-ROCHE-3382672

PATIENT
  Age: 70 Year
  Sex: Female
  Weight: 72 kg

DRUGS (15)
  1. DOXORUBICIN [Suspect]
     Active Substance: DOXORUBICIN
     Indication: Diffuse large B-cell lymphoma
     Dosage: 50 MILLIGRAM/SQ. METER )(START DATE OF MOST RECENT DOSE OF STUDY DRUGPRIOR TO SAE, 08-DEC-2022, DOSE
     Route: 042
     Dates: start: 20220823
  2. PREDNISONE [Suspect]
     Active Substance: PREDNISONE
     Indication: Diffuse large B-cell lymphoma
     Dosage: 100 MILLIGRAM (START DATE OF MOST RECENT DOSE OF STUDY DRUGPRIOR TO AE/SAE , 12-DEC-2022 , DOSE LAST
     Route: 065
     Dates: start: 20220824
  3. CYCLOPHOSPHAMIDE [Suspect]
     Active Substance: CYCLOPHOSPHAMIDE
     Indication: Diffuse large B-cell lymphoma
     Dosage: 750 MILLIGRAM/SQ. METER (START DATE OF MOST RECENT DOSE OF STUDY DRUGPRIOR TO SAE 08-DEC-2022 , DOSE
     Route: 042
     Dates: start: 20220823
  4. GLOFITAMAB [Suspect]
     Active Substance: GLOFITAMAB
     Indication: Diffuse large B-cell lymphoma
     Dosage: 2.5 MILLIGRAM (START DATE OF MOST RECENT DOSE OF STUDY DRUGPRIOR TO SAE, 02-MAR-2023, 30 MG)`
     Route: 042
     Dates: start: 20221012
  5. METHYLPREDNISOLONE [Suspect]
     Active Substance: METHYLPREDNISOLONE
     Indication: Diffuse large B-cell lymphoma
     Dosage: 80 MILLIGRAM (START DATE OF MOST RECENT DOSE OF STUDY DRUGPRIOR TO AE/SAE , 08-DEC-2022)
     Route: 042
     Dates: start: 20220823
  6. RITUXIMAB [Suspect]
     Active Substance: RITUXIMAB
     Indication: Diffuse large B-cell lymphoma
     Dosage: 375 MILLIGRAM/SQ. METER (START DATE OF MOST RECENT DOSE OF STUDY DRUGPRIOR TO SAE, 08-DEC-2022, 375
     Route: 042
     Dates: start: 20220823
  7. VINCRISTINE [Suspect]
     Active Substance: VINCRISTINE
     Indication: Diffuse large B-cell lymphoma
     Dosage: 1.4 MILLIGRAM/SQ. METER (START DATE OF MOST RECENT DOSE OF STUDY DRUGPRIOR TO AE/SAE 08-DEC-2022 , D
     Route: 042
     Dates: start: 20220823
  8. LEUCOVORIN CALCIUM [Concomitant]
     Active Substance: LEUCOVORIN CALCIUM
     Indication: Product used for unknown indication
     Dosage: 25 MILLIGRAM (0.33 WEEKS)
     Route: 065
     Dates: start: 20220823
  9. ATORVASTATIN [Concomitant]
     Active Substance: ATORVASTATIN
     Indication: Hypercholesterolaemia
     Dosage: 10 MILLIGRAM, ONCE A DAY
     Route: 065
  10. SULFAMETHOXAZOLE [Concomitant]
     Active Substance: SULFAMETHOXAZOLE
     Indication: Product used for unknown indication
     Dosage: 800 MILLIGRAM (0.33 WEEKS)
     Route: 065
     Dates: start: 20220824
  11. CANDESARTAN [Concomitant]
     Active Substance: CANDESARTAN
     Indication: Hypertension
     Dosage: 8 MILLIGRAM, ONCE A DAY
     Route: 065
  12. VALACYCLOVIR HYDROCHLORIDE [Concomitant]
     Active Substance: VALACYCLOVIR HYDROCHLORIDE
     Indication: Product used for unknown indication
     Dosage: 500 MILLIGRAM (0.5 DAYS)
     Route: 065
     Dates: start: 20220824
  13. TRIMETHOPRIM [Concomitant]
     Active Substance: TRIMETHOPRIM
     Indication: Product used for unknown indication
     Dosage: 160 MILLIGRAM (0.33 WEEKS)
     Route: 065
     Dates: start: 20220824
  14. OXAZEPAM [Concomitant]
     Active Substance: OXAZEPAM
     Indication: Product used for unknown indication
     Dosage: 10 MILLIGRAM, ONCE A DAY
     Route: 065
  15. APIXABAN [Concomitant]
     Active Substance: APIXABAN
     Indication: Thrombosis
     Dosage: 5 MILLIGRAM (0.5 DAYS)
     Route: 065
     Dates: start: 20221026

REACTIONS (1)
  - Pneumonia [Recovered/Resolved]

NARRATIVE: CASE EVENT DATE: 20230504
